FAERS Safety Report 5697858-5 (Version None)
Quarter: 2008Q2

REPORT INFORMATION
  Report Type: 
  Country: None (occurrence: None)
  Receive Date: 20080404
  Receipt Date: 20080404
  Transmission Date: 20081010
  Serious: Yes (Other)
  Sender: FDA-Public Use
  Company Number: None

PATIENT
  Sex: Male
  Weight: 78.4723 kg

DRUGS (2)
  1. AMLODIPINE [Suspect]
     Indication: HYPERTENSION
     Dosage: 10 MG QD MOUTH
     Route: 048
     Dates: start: 20080102, end: 20080215
  2. BENICAR [Suspect]
     Indication: HYPERTENSION
     Dosage: 40MG QD MOUTH
     Route: 048
     Dates: start: 20080102, end: 20080215

REACTIONS (2)
  - BLOOD PRESSURE INCREASED [None]
  - DRUG INEFFECTIVE [None]
